FAERS Safety Report 4836111-6 (Version None)
Quarter: 2005Q4

REPORT INFORMATION
  Report Type: 
  Country: None (occurrence: None)
  Receive Date: 20051123
  Receipt Date: 20051107
  Transmission Date: 20060501
  Serious: Yes (Hospitalization, Other)
  Sender: FDA-Public Use
  Company Number: US-MERCK-0511USA01125

PATIENT
  Age: 65 Year
  Sex: Female
  Weight: 105 kg

DRUGS (3)
  1. VIOXX [Suspect]
     Route: 048
     Dates: start: 19970101, end: 20021001
  2. INSULIN [Concomitant]
     Route: 065
  3. [THERAPY UNSPECIFIED] [Concomitant]
     Route: 065

REACTIONS (4)
  - CARDIAC FAILURE CONGESTIVE [None]
  - CEREBROVASCULAR ACCIDENT [None]
  - GALLBLADDER DISORDER [None]
  - RENAL FAILURE [None]
